FAERS Safety Report 9193000 (Version 1)
Quarter: 2013Q1

REPORT INFORMATION
  Report Type: Spontaneous
  Country: US (occurrence: None)
  Receive Date: 20120703
  Receipt Date: 20120703
  Transmission Date: 20140127
  Serious: No
  Sender: FDA-Public Use
  Company Number: PHEH2012US006652

PATIENT
  Age: 31 Year
  Sex: Female

DRUGS (1)
  1. GILENYA (FTY) CAPSULE [Suspect]
     Indication: MULTIPLE SCLEROSIS
     Route: 048
     Dates: start: 20120306, end: 20120317

REACTIONS (4)
  - Oedema peripheral [None]
  - Chest discomfort [None]
  - Malaise [None]
  - Asthenia [None]
